FAERS Safety Report 4990420-9 (Version None)
Quarter: 2006Q1

REPORT INFORMATION
  Report Type: 
  Country: None (occurrence: None)
  Receive Date: 20060315
  Receipt Date: 20050413
  Transmission Date: 20060701
  Serious: Yes (Other)
  Sender: FDA-Public Use
  Company Number: USA050393264

PATIENT
  Sex: Female

DRUGS (5)
  1. GEMZAR [Suspect]
     Indication: PANCREATIC CARCINOMA
     Dosage: 1600 MG
     Dates: start: 20041101, end: 20050301
  2. PANCRELIPASE (PANCRELIPASE) [Concomitant]
  3. IMDUR [Concomitant]
  4. DURAGESIC-100 [Concomitant]
  5. LASIX [Concomitant]

REACTIONS (3)
  - CELLULITIS [None]
  - DERMATITIS [None]
  - MALIGNANT NEOPLASM PROGRESSION [None]
